FAERS Safety Report 16034884 (Version 1)
Quarter: 2019Q1

REPORT INFORMATION
  Report Type: Report from Study
  Country: US (occurrence: US)
  Receive Date: 20190305
  Receipt Date: 20190305
  Transmission Date: 20190418
  Serious: Yes (Other)
  Sender: FDA-Public Use
  Company Number: US-ASTELLAS-2019US008089

PATIENT
  Sex: Female

DRUGS (4)
  1. PANTOPRAZOLE [Interacting]
     Active Substance: PANTOPRAZOLE
     Indication: GASTROINTESTINAL HAEMORRHAGE
     Dosage: UNK, UNKNOWN FREQ.
     Route: 065
  2. ERLOTINIB [Suspect]
     Active Substance: ERLOTINIB
     Indication: LUNG NEOPLASM MALIGNANT
     Route: 048
  3. ERLOTINIB [Interacting]
     Active Substance: ERLOTINIB
     Route: 065
  4. ERLOTINIB [Interacting]
     Active Substance: ERLOTINIB
     Route: 048

REACTIONS (3)
  - Gastrointestinal haemorrhage [Unknown]
  - Drug interaction [Unknown]
  - Malabsorption [Unknown]
